FAERS Safety Report 7878737-1 (Version None)
Quarter: 2011Q4

REPORT INFORMATION
  Report Type: 
  Country: None (occurrence: None)
  Receive Date: 20111101
  Receipt Date: 20111028
  Transmission Date: 20120403
  Serious: Yes (Hospitalization, Other)
  Sender: FDA-Public Use
  Company Number: US-GENZYME-THYM-1002618

PATIENT
  Age: 34 Year
  Sex: Female

DRUGS (6)
  1. THYMOGLOBULIN [Suspect]
     Indication: PROPHYLAXIS AGAINST TRANSPLANT REJECTION
     Dosage: 6 MG/KG, UNK
     Route: 042
  2. WARFARIN SODIUM [Suspect]
     Indication: SPLENIC VEIN THROMBOSIS
     Route: 065
  3. METHYLPREDNISOLONE [Concomitant]
     Indication: PROPHYLAXIS AGAINST TRANSPLANT REJECTION
  4. PREDNISOLONE [Concomitant]
     Indication: IMMUNOSUPPRESSION
  5. FLUCONAZOLE [Concomitant]
     Indication: IMMUNOSUPPRESSION
  6. MYCOPHENOLATE MOFETIL [Concomitant]
     Indication: IMMUNOSUPPRESSION

REACTIONS (4)
  - SPLENIC VEIN THROMBOSIS [None]
  - COAGULOPATHY [None]
  - TRANSPLANT REJECTION [None]
  - THROMBOTIC MICROANGIOPATHY [None]
